FAERS Safety Report 9516104 (Version 5)
Quarter: 2013Q4

REPORT INFORMATION
  Report Type: Spontaneous
  Country: GB (occurrence: GB)
  Receive Date: 20130911
  Receipt Date: 20131216
  Transmission Date: 20140711
  Serious: Yes (Death, Hospitalization, Other)
  Sender: FDA-Public Use
  Company Number: GB-PFIZER INC-2013261031

PATIENT
  Age: 69 Year
  Sex: Female
  Weight: 120 kg

DRUGS (18)
  1. SERTRALINE HCL [Suspect]
     Indication: DEPRESSION
     Dosage: 50 MG, 1X/DAY
     Route: 048
     Dates: start: 20130802, end: 20130818
  2. METHOTREXATE [Concomitant]
     Indication: RHEUMATOID ARTHRITIS
     Dosage: UNK
  3. PARACETAMOL [Concomitant]
     Dosage: UNK
  4. PREDNISOLONE [Concomitant]
     Indication: RHEUMATOID ARTHRITIS
     Dosage: UNK
  5. RABEPRAZOLE [Concomitant]
     Dosage: UNK
  6. SENNA [Concomitant]
     Dosage: UNK
  7. WARFARIN [Concomitant]
     Dosage: UNK
  8. CETIRIZINE [Concomitant]
     Dosage: UNK
  9. BISOPROLOL [Concomitant]
     Dosage: UNK
  10. DIGOXIN [Concomitant]
     Dosage: UNK
  11. DIHYDROCODEINE [Concomitant]
     Dosage: UNK
  12. FERROUS FUMARATE [Concomitant]
     Dosage: UNK
  13. FOLIC ACID [Concomitant]
     Dosage: UNK
  14. LACTULOSE [Concomitant]
     Dosage: UNK
  15. LEVOTHYROXINE [Concomitant]
     Dosage: UNK
  16. SIMVASTATIN [Concomitant]
     Dosage: UNK
  17. DOCUSATE [Concomitant]
     Dosage: UNK
  18. MOVELAT [Concomitant]
     Dosage: UNK

REACTIONS (9)
  - Toxic epidermal necrolysis [Fatal]
  - Multi-organ failure [Unknown]
  - Atrial fibrillation [Unknown]
  - Sepsis [Unknown]
  - Lower respiratory tract infection [Unknown]
  - Rash [Unknown]
  - Dehydration [Unknown]
  - Cardiovascular disorder [Unknown]
  - Stevens-Johnson syndrome [Not Recovered/Not Resolved]
